FAERS Safety Report 4803221-9 (Version None)
Quarter: 2005Q3

REPORT INFORMATION
  Report Type: 
  Country: None (occurrence: None)
  Receive Date: 20050929
  Receipt Date: 20050622
  Transmission Date: 20060218
  Serious: Yes (Hospitalization)
  Sender: FDA-Public Use
  Company Number: 05P-163-0303780-00

PATIENT
  Age: 69 Year
  Sex: Male
  Weight: 86.1834 kg

DRUGS (10)
  1. HUMIRA [Suspect]
     Indication: RHEUMATOID ARTHRITIS
     Dosage: 40 MG, 1 IN 2 WK, SUBCUTANEOUS
     Route: 058
     Dates: start: 20040101, end: 20050101
  2. DILTIAZEM HYDROCHLORIDE [Concomitant]
  3. FUROSEMIDE [Concomitant]
  4. SERTRALINE HYDROCHLORIDE [Concomitant]
  5. IRON [Concomitant]
  6. CYANOCOBALAMIN [Concomitant]
  7. TRAMADOL HYDROCHLORIDE [Concomitant]
  8. PROPACET 100 [Concomitant]
  9. PRAMIPEXOLE DIHYDROCHLORIDE [Concomitant]
  10. ALPRAZOLAM [Concomitant]

REACTIONS (3)
  - SEPSIS [None]
  - THROMBOSIS [None]
  - WOUND INFECTION STAPHYLOCOCCAL [None]
